FAERS Safety Report 4767084-2 (Version None)
Quarter: 2005Q3

REPORT INFORMATION
  Report Type: 
  Country: None (occurrence: None)
  Receive Date: 20050906
  Receipt Date: 20050729
  Transmission Date: 20060218
  Serious: No
  Sender: FDA-Public Use
  Company Number: 2005-BP-13106BP

PATIENT

DRUGS (1)
  1. SPIRIVA [Suspect]
     Dosage: 18 MCG

REACTIONS (1)
  - URINARY RETENTION [None]
